FAERS Safety Report 16181173 (Version 2)
Quarter: 2019Q2

REPORT INFORMATION
  Report Type: Spontaneous
  Country: US (occurrence: US)
  Receive Date: 20190410
  Receipt Date: 20190510
  Transmission Date: 20190711
  Serious: No
  Sender: FDA-Public Use
  Company Number: US-BIOGEN-2019BI00721082

PATIENT
  Age: 45 Year
  Sex: Female

DRUGS (1)
  1. TYSABRI [Suspect]
     Active Substance: NATALIZUMAB
     Indication: MULTIPLE SCLEROSIS
     Route: 042
     Dates: start: 20190125, end: 20190321

REACTIONS (5)
  - Eye swelling [Unknown]
  - Swelling face [Unknown]
  - Lip swelling [Unknown]
  - Pharyngeal swelling [Unknown]
  - Urticaria [Unknown]

NARRATIVE: CASE EVENT DATE: 20190322
